FAERS Safety Report 6959939-5 (Version None)
Quarter: 2010Q3

REPORT INFORMATION
  Report Type: 
  Country: None (occurrence: None)
  Receive Date: 20100901
  Receipt Date: 20100816
  Transmission Date: 20110219
  Serious: No
  Sender: FDA-Public Use
  Company Number: US-JNJFOC-20100806343

PATIENT
  Sex: Male
  Weight: 77.11 kg

DRUGS (6)
  1. FENTANYL CITRATE [Suspect]
     Indication: GROIN PAIN
     Dosage: NDC#: 0781-7242-55
     Route: 062
  2. FENTANYL CITRATE [Suspect]
     Route: 062
  3. FENTANYL CITRATE [Suspect]
     Indication: BACK PAIN
     Route: 062
  4. FENTANYL CITRATE [Suspect]
     Dosage: NDC#: 0781-7242-55
     Route: 062
  5. PERCOCET [Concomitant]
     Indication: BREAKTHROUGH PAIN
     Dosage: 10/325 MG TABLET TWICE AS NEEDED
     Route: 048
  6. NEURONTIN [Concomitant]
     Indication: NEURALGIA
     Route: 048

REACTIONS (4)
  - ADVERSE EVENT [None]
  - APPLICATION SITE IRRITATION [None]
  - PRODUCT ADHESION ISSUE [None]
  - WRONG TECHNIQUE IN DRUG USAGE PROCESS [None]
